FAERS Safety Report 4918137-7 (Version None)
Quarter: 2006Q1

REPORT INFORMATION
  Report Type: 
  Country: None (occurrence: None)
  Receive Date: 20060215
  Receipt Date: 20060202
  Transmission Date: 20060701
  Serious: Yes (Other)
  Sender: FDA-Public Use
  Company Number: 2006018860

PATIENT
  Age: 64 Year
  Sex: Female

DRUGS (3)
  1. ZYVOX [Suspect]
     Indication: STAPHYLOCOCCAL INFECTION
  2. TEICOPLANIN (TEICOPLANIN) [Concomitant]
  3. RIFAMPICIN [Concomitant]

REACTIONS (1)
  - PANCREATITIS [None]
